FAERS Safety Report 7640334-0 (Version None)
Quarter: 2011Q3

REPORT INFORMATION
  Report Type: 
  Country: None (occurrence: None)
  Receive Date: 20110728
  Receipt Date: 20110627
  Transmission Date: 20111222
  Serious: Yes (Other)
  Sender: FDA-Public Use
  Company Number: US-BAYER-2011-012983

PATIENT
  Age: 43 Year
  Sex: Female

DRUGS (7)
  1. AVONEX [Concomitant]
  2. BACLOFEN [Concomitant]
  3. ACTHAR [Concomitant]
  4. BETASERON [Suspect]
     Indication: MULTIPLE SCLEROSIS
     Dosage: UNK
     Route: 058
     Dates: start: 20100624, end: 20101029
  5. BETASERON [Suspect]
     Dosage: 8 MIU, QOD
     Route: 058
     Dates: end: 20110619
  6. METHADON AMIDONE HCL TAB [Concomitant]
  7. BETASERON [Suspect]
     Dosage: 2 MIU, QOD
     Route: 058
     Dates: start: 20110125

REACTIONS (20)
  - VISUAL IMPAIRMENT [None]
  - VISION BLURRED [None]
  - UPPER LIMB FRACTURE [None]
  - MULTIPLE SCLEROSIS RELAPSE [None]
  - MOBILITY DECREASED [None]
  - AREFLEXIA [None]
  - LIMB CRUSHING INJURY [None]
  - URINARY INCONTINENCE [None]
  - RENAL DISORDER [None]
  - POLLAKIURIA [None]
  - UPPER EXTREMITY MASS [None]
  - BLADDER DISORDER [None]
  - CYSTITIS [None]
  - OROPHARYNGEAL BLISTERING [None]
  - FALL [None]
  - CONTUSION [None]
  - ABASIA [None]
  - MULTIPLE SCLEROSIS [None]
  - PAIN [None]
  - TONGUE BLISTERING [None]
